FAERS Safety Report 7437042-8 (Version None)
Quarter: 2011Q2

REPORT INFORMATION
  Report Type: 
  Country: None (occurrence: None)
  Receive Date: 20110426
  Receipt Date: 20110411
  Transmission Date: 20111010
  Serious: Yes (Other)
  Sender: FDA-Public Use
  Company Number: PHHY2010JP60305

PATIENT
  Sex: Male

DRUGS (6)
  1. NO TREATMENT RECEIVED [Suspect]
     Indication: METASTATIC RENAL CELL CARCINOMA
     Dosage: 10 MG DAILY
     Route: 048
     Dates: start: 20100613, end: 20100620
  2. MYSLEE [Concomitant]
     Dosage: 10 MG, UNK
     Route: 048
     Dates: start: 20100526, end: 20100706
  3. BETAMETHASONE [Concomitant]
     Dosage: 3 MG, UNK
     Route: 048
     Dates: start: 20100518, end: 20100706
  4. SUNITINIB MALATE [Concomitant]
     Indication: METASTATIC RENAL CELL CARCINOMA
     Dosage: 50 MG, UNK
     Route: 048
     Dates: start: 20100218, end: 20100613
  5. PARIET [Concomitant]
     Dosage: 10 MG, UNK
     Route: 048
     Dates: start: 20100130, end: 20100706
  6. LASIX [Concomitant]
     Dosage: 40 MG, UNK
     Route: 048
     Dates: start: 20100130, end: 20100706

REACTIONS (1)
  - HYPOAESTHESIA [None]
